FAERS Safety Report 23797796 (Version 7)
Quarter: 2025Q4

REPORT INFORMATION
  Report Type: Report from Study
  Country: US (occurrence: US)
  Receive Date: 20240430
  Receipt Date: 20251030
  Transmission Date: 20260118
  Serious: Yes (Death, Hospitalization, Other)
  Sender: TAKEDA
  Company Number: US-TAKEDA-2024TUS031780

PATIENT
  Age: 77 Year
  Sex: Male
  Weight: 79 kg

DRUGS (15)
  1. PONATINIB [Suspect]
     Active Substance: PONATINIB
     Indication: Acute myeloid leukaemia
     Dosage: 30 MILLIGRAM, QD
  2. PONATINIB [Suspect]
     Active Substance: PONATINIB
     Indication: Chronic leukaemia
     Dosage: 30 MILLIGRAM, QD
     Dates: start: 20240402
  3. PONATINIB [Suspect]
     Active Substance: PONATINIB
     Dosage: 30 MILLIGRAM, QD
  4. PONATINIB [Suspect]
     Active Substance: PONATINIB
     Dosage: 45 MILLIGRAM, QD
  5. IRON [Suspect]
     Active Substance: IRON
     Indication: Acute myeloid leukaemia
     Dosage: UNK
  6. MAGNESIUM [Suspect]
     Active Substance: MAGNESIUM
     Indication: Acute myeloid leukaemia
     Dosage: UNK
  7. VITAMIN B12 [Concomitant]
     Active Substance: CYANOCOBALAMIN
     Dosage: UNK
  8. ACYCLOVIR [Concomitant]
     Active Substance: ACYCLOVIR
     Dosage: UNK
  9. FOLIC ACID [Concomitant]
     Active Substance: FOLIC ACID
     Dosage: UNK
  10. AMLODIPINE [Concomitant]
     Active Substance: AMLODIPINE BESYLATE
     Dosage: UNK
  11. LEVOFLOXACIN [Concomitant]
     Active Substance: LEVOFLOXACIN
     Indication: Infection
     Dosage: UNK
  12. DRONABINOL [Concomitant]
     Active Substance: DRONABINOL
     Dosage: UNK
  13. VITAMIN C [Concomitant]
     Active Substance: ASCORBIC ACID
     Dosage: UNK
  14. LOSARTAN [Concomitant]
     Active Substance: LOSARTAN
     Dosage: UNK
  15. ALLOPURINOL [Concomitant]
     Active Substance: ALLOPURINOL
     Dosage: UNK

REACTIONS (22)
  - Death [Fatal]
  - White blood cell count decreased [Unknown]
  - Localised infection [Not Recovered/Not Resolved]
  - Infection [Unknown]
  - Peripheral swelling [Recovering/Resolving]
  - Skin exfoliation [Unknown]
  - Insomnia [Unknown]
  - Abdominal discomfort [Unknown]
  - Vomiting [Unknown]
  - Asthenia [Unknown]
  - Fatigue [Unknown]
  - Product prescribing issue [Unknown]
  - Off label use [Unknown]
  - Body temperature increased [Recovering/Resolving]
  - Decreased immune responsiveness [Recovering/Resolving]
  - Poor venous access [Unknown]
  - Dysuria [Unknown]
  - Pain in extremity [Recovering/Resolving]
  - Haemorrhage [Recovering/Resolving]
  - Dizziness [Unknown]
  - Pyrexia [Recovering/Resolving]
  - Abdominal pain upper [Unknown]

NARRATIVE: CASE EVENT DATE: 20240418
